FAERS Safety Report 6882326-5 (Version None)
Quarter: 2010Q3

REPORT INFORMATION
  Report Type: 
  Country: None (occurrence: None)
  Receive Date: 20100729
  Receipt Date: 20091030
  Transmission Date: 20110219
  Serious: No
  Sender: FDA-Public Use
  Company Number: US-MYLANLABS-2009S1019081

PATIENT
  Age: 67 Year
  Sex: Female

DRUGS (2)
  1. LEVOTHYROXINE SODIUM [Suspect]
     Indication: HYPOTHYROIDISM
     Route: 048
     Dates: start: 20091026
  2. SKELAXIN [Concomitant]
     Indication: MUSCLE SPASMS
     Dosage: YEARS

REACTIONS (2)
  - MUSCLE TWITCHING [None]
  - PAIN [None]
